FAERS Safety Report 7939166-5 (Version None)
Quarter: 2011Q4

REPORT INFORMATION
  Report Type: 
  Country: None (occurrence: None)
  Receive Date: 20111124
  Receipt Date: 20111118
  Transmission Date: 20120403
  Serious: Yes (Other)
  Sender: FDA-Public Use
  Company Number: KR-BRISTOL-MYERS SQUIBB COMPANY-16240152

PATIENT
  Age: 27 Year
  Sex: Male

DRUGS (1)
  1. BARACLUDE [Suspect]
     Dates: start: 20110601

REACTIONS (3)
  - DYSURIA [None]
  - HEPATIC NEOPLASM MALIGNANT [None]
  - ALOPECIA [None]
